FAERS Safety Report 8178012-4 (Version None)
Quarter: 2012Q1

REPORT INFORMATION
  Report Type: 
  Country: None (occurrence: None)
  Receive Date: 20120130
  Receipt Date: 20110708
  Transmission Date: 20120608
  Serious: Yes (Other)
  Sender: FDA-Public Use
  Company Number: 036892

PATIENT
  Sex: Female
  Weight: 86.2 kg

DRUGS (1)
  1. KEPPRA [Suspect]
     Indication: CONVULSION
     Dosage: (2500 MG ORAL)
     Route: 048
     Dates: start: 20080101

REACTIONS (1)
  - CONVULSION [None]
